FAERS Safety Report 4846579-7 (Version None)
Quarter: 2005Q4

REPORT INFORMATION
  Report Type: 
  Country: None (occurrence: None)
  Receive Date: 20051202
  Receipt Date: 20051117
  Transmission Date: 20060501
  Serious: Yes (Other)
  Sender: FDA-Public Use
  Company Number: 12946

PATIENT
  Age: 61 Year
  Sex: Female

DRUGS (1)
  1. METHOTREXATE [Suspect]
     Indication: BREAST CANCER METASTATIC
     Dosage: 20 MG ONCE IV
     Route: 042

REACTIONS (2)
  - APHASIA [None]
  - SUPRAVENTRICULAR EXTRASYSTOLES [None]
